FAERS Safety Report 21936672 (Version 1)
Quarter: 2023Q1

REPORT INFORMATION
  Report Type: Spontaneous
  Country: US (occurrence: US)
  Receive Date: 20230201
  Receipt Date: 20230201
  Transmission Date: 20230418
  Serious: Yes (Other)
  Sender: FDA-Public Use
  Company Number: US-Amarin Pharma, Inc.-2023AMR000035

PATIENT
  Age: 74 Year
  Sex: Male
  Weight: 88.45 kg

DRUGS (4)
  1. VASCEPA [Suspect]
     Active Substance: ICOSAPENT ETHYL
     Indication: Blood triglycerides increased
     Route: 048
  2. LISINOPRIL [Concomitant]
     Active Substance: LISINOPRIL
     Indication: Blood pressure abnormal
  3. VITAMIN D [Concomitant]
     Active Substance: VITAMIN D NOS
     Indication: Product used for unknown indication
  4. VITAMINS [Concomitant]
     Active Substance: VITAMINS
     Indication: Product used for unknown indication

REACTIONS (4)
  - Choking [Unknown]
  - Cough [Unknown]
  - Dysphagia [Unknown]
  - Product size issue [Unknown]

NARRATIVE: CASE EVENT DATE: 20220101
